FAERS Safety Report 16974145 (Version 1)
Quarter: 2019Q4

REPORT INFORMATION
  Report Type: Spontaneous
  Country: FR (occurrence: FR)
  Receive Date: 20191030
  Receipt Date: 20191030
  Transmission Date: 20200122
  Serious: Yes (Hospitalization, Other)
  Sender: FDA-Public Use
  Company Number: FR-MYLANLABS-2019M1102588

PATIENT
  Age: 60 Year
  Sex: Male
  Weight: 65 kg

DRUGS (2)
  1. KARDEGIC [Suspect]
     Active Substance: ASPIRIN DL-LYSINE
     Indication: CEREBELLAR INFARCTION
     Dosage: 1 DOSAGE FORM, QD
     Route: 048
     Dates: start: 2012
  2. FONDAPARINUX [Suspect]
     Active Substance: FONDAPARINUX
     Indication: THROMBOPHLEBITIS SUPERFICIAL
     Dosage: 1 DOSAGE FORM, QD
     Route: 058
     Dates: start: 201906

REACTIONS (4)
  - Incorrect dose administered [Unknown]
  - Melaena [Recovered/Resolved]
  - Haematemesis [Recovered/Resolved]
  - Oesophageal haemorrhage [Recovered/Resolved]

NARRATIVE: CASE EVENT DATE: 20190914
